FAERS Safety Report 9419993 (Version 1)
Quarter: 2013Q3

REPORT INFORMATION
  Report Type: Spontaneous
  Country: US (occurrence: None)
  Receive Date: 20130724
  Receipt Date: 20130724
  Transmission Date: 20140515
  Serious: Yes (Other)
  Sender: FDA-Public Use
  Company Number: None

PATIENT
  Age: 28 Year
  Sex: Female
  Weight: 64.86 kg

DRUGS (2)
  1. LORYNA 3MG/0.02MG SANDOZ [Suspect]
     Indication: MIGRAINE
     Dosage: 1 PILL QD  PO
     Route: 048
     Dates: start: 20130503, end: 20130702
  2. METOPROLOL TARTRATE [Concomitant]

REACTIONS (5)
  - Pulmonary embolism [None]
  - Peripheral artery thrombosis [None]
  - Ankle fracture [None]
  - Pain in extremity [None]
  - Groin pain [None]
